FAERS Safety Report 25214400 (Version 1)
Quarter: 2025Q2

REPORT INFORMATION
  Report Type: Spontaneous
  Country: FR (occurrence: FR)
  Receive Date: 20250418
  Receipt Date: 20250418
  Transmission Date: 20250717
  Serious: Yes (Hospitalization)
  Sender: PFIZER
  Company Number: None

PATIENT
  Age: 78 Year
  Sex: Male

DRUGS (2)
  1. AZITHROMYCIN [Interacting]
     Active Substance: AZITHROMYCIN
     Indication: Bronchitis
     Route: 048
     Dates: start: 20250310, end: 20250314
  2. FLUINDIONE [Interacting]
     Active Substance: FLUINDIONE
     Indication: Embolism
     Dosage: 0.75 TO 1 TABLET/DAY (TARGET INR 2- 2.5)
     Route: 048
     Dates: start: 2023, end: 20250314

REACTIONS (3)
  - Pelvic haematoma [Recovered/Resolved]
  - International normalised ratio increased [Recovered/Resolved]
  - Drug interaction [Recovered/Resolved]

NARRATIVE: CASE EVENT DATE: 20250310
